FAERS Safety Report 9110708 (Version 1)
Quarter: 2013Q1

REPORT INFORMATION
  Report Type: Spontaneous
  Country: US (occurrence: US)
  Receive Date: 20130219
  Receipt Date: 20130219
  Transmission Date: 20140127
  Serious: No
  Sender: FDA-Public Use
  Company Number: US-BRISTOL-MYERS SQUIBB COMPANY-16557530

PATIENT
  Age: 58 Year
  Sex: Female
  Weight: 78 kg

DRUGS (1)
  1. ORENCIA [Suspect]
     Indication: RHEUMATOID ARTHRITIS
     Dosage: STARTED SUBQ IN MAR 12, NO OF INJ:3.?8JUL11,FEB12:IV ROUTE?MAR12:SC125MG?13APR12:IV
     Route: 042
     Dates: start: 201106

REACTIONS (5)
  - Urticaria [Unknown]
  - Asthma [Unknown]
  - Joint swelling [Unknown]
  - Photosensitivity reaction [Not Recovered/Not Resolved]
  - Drug ineffective [Unknown]
